FAERS Safety Report 6209077-4 (Version None)
Quarter: 2009Q2

REPORT INFORMATION
  Report Type: 
  Country: None (occurrence: None)
  Receive Date: 20090529
  Receipt Date: 20090521
  Transmission Date: 20091009
  Serious: Yes (Hospitalization)
  Sender: FDA-Public Use
  Company Number: US-BIOGENIDEC-2009BI015658

PATIENT
  Age: 29 Year
  Sex: Female

DRUGS (3)
  1. TYSABRI [Suspect]
     Indication: MULTIPLE SCLEROSIS
     Route: 042
     Dates: start: 20070426
  2. WELLBUTRIN [Concomitant]
  3. EFFEXOR [Concomitant]

REACTIONS (2)
  - INCISION SITE OEDEMA [None]
  - MUSCLE SPASTICITY [None]
